FAERS Safety Report 7208436-0 (Version None)
Quarter: 2011Q1

REPORT INFORMATION
  Report Type: 
  Country: None (occurrence: None)
  Receive Date: 20110104
  Receipt Date: 20101222
  Transmission Date: 20110831
  Serious: Yes (Other)
  Sender: FDA-Public Use
  Company Number: PHHY2010SI88108

PATIENT
  Age: 58 Year
  Sex: Male

DRUGS (11)
  1. ALISKIREN [Suspect]
     Indication: HYPERTENSION
     Dosage: 150 MG ONCE DAILY
     Dates: start: 20100311
  2. LACIPIL [Concomitant]
     Dosage: 4 MG, BID
     Route: 048
     Dates: start: 20020101
  3. VALSACOR [Concomitant]
     Dosage: 160 MG
     Route: 048
     Dates: start: 20020101
  4. APIDRA [Concomitant]
     Indication: DIABETES MELLITUS
  5. LASIX [Concomitant]
     Dosage: HALF TABLET TWICE PER WEEK
  6. LANTUS [Concomitant]
     Indication: DIABETES MELLITUS
     Dosage: UNK
  7. ALISKIREN [Suspect]
     Dosage: 300 MG
  8. FENOFIBRATE [Concomitant]
     Indication: HYPERLIPIDAEMIA
     Dosage: UNK
     Route: 048
     Dates: start: 20020101
  9. TERTENSIF - SLOW RELEASE [Concomitant]
     Dosage: UNK
     Route: 048
     Dates: start: 20020101
  10. CORYOL [Concomitant]
     Dosage: 2.5 MEQ/KG, BID
     Route: 048
     Dates: start: 20020101
  11. TRITACE [Concomitant]
     Dosage: 5 MG, BID
     Route: 048
     Dates: start: 20020101

REACTIONS (1)
  - URINE ALBUMIN/CREATININE RATIO INCREASED [None]
